FAERS Safety Report 9855725 (Version 1)
Quarter: 2014Q1

REPORT INFORMATION
  Report Type: Spontaneous
  Country: DE (occurrence: DE)
  Receive Date: 20140130
  Receipt Date: 20140130
  Transmission Date: 20141002
  Serious: Yes (Other)
  Sender: FDA-Public Use
  Company Number: DE-PFIZER INC-2014025204

PATIENT
  Age: 74 Year
  Sex: Male

DRUGS (2)
  1. XALATAN [Suspect]
     Dosage: DROPS 2X DAILY
  2. XALATAN [Suspect]
     Dosage: 1X DAILY

REACTIONS (1)
  - Intraocular pressure increased [Unknown]
